FAERS Safety Report 10687483 (Version 1)
Quarter: 2014Q4

REPORT INFORMATION
  Report Type: Spontaneous
  Country: US (occurrence: None)
  Receive Date: 20141230
  Receipt Date: 20141230
  Transmission Date: 20150529
  Serious: Yes (Death)
  Sender: FDA-Public Use
  Company Number: COR_00203_2014

PATIENT

DRUGS (3)
  1. CISPLATIN. [Suspect]
     Active Substance: CISPLATIN
     Indication: SMALL CELL LUNG CANCER
     Dosage: DAY 1, EVERY 21 FOR FOUR CYCLES (NOT OTHERWISE SPECIFIED)
     Route: 042
  2. ETOPOSIDE. [Suspect]
     Active Substance: ETOPOSIDE
     Indication: SMALL CELL LUNG CANCER
     Dosage: ON DAYS 1, 2 , 3,  EVERY 21 DAYS FOR FOUR CYCLES (NOT OTHERWISE SPECIFIED)
     Route: 042
  3. SORAFENIB [Suspect]
     Active Substance: SORAFENIB
     Indication: SMALL CELL LUNG CANCER
     Dosage: DAILY STARTING ON DAY 1 CYCLE 1
     Route: 048

REACTIONS (1)
  - Gastrointestinal haemorrhage [None]
